FAERS Safety Report 24601193 (Version 1)
Quarter: 2024Q4

REPORT INFORMATION
  Report Type: Report from Study
  Country: NL (occurrence: NL)
  Receive Date: 20241110
  Receipt Date: 20241110
  Transmission Date: 20250115
  Serious: Yes (Hospitalization)
  Sender: ABBVIE
  Company Number: NL-ABBVIE-5772625

PATIENT
  Age: 63 Year
  Sex: Male

DRUGS (8)
  1. CARBIDOPA\LEVODOPA [Suspect]
     Active Substance: CARBIDOPA\LEVODOPA
     Indication: Parkinson^s disease
     Dosage: MD 9.5ML, CD 5.5ML/H, ED 2.0ML, CND 3.0ML/H, END 2.0ML?DURATION TEXT: REMAINS AT 24 HOURS
     Route: 050
     Dates: start: 20240320, end: 20240320
  2. CARBIDOPA\LEVODOPA [Suspect]
     Active Substance: CARBIDOPA\LEVODOPA
     Dosage: END DATE: 2024?DURATION TEXT: REMAINS AT 24
     Route: 050
     Dates: start: 20240129
  3. CARBIDOPA\LEVODOPA [Suspect]
     Active Substance: CARBIDOPA\LEVODOPA
     Dosage: MD 9.5ML, CD 5.5ML/H, ED 2.0ML, CND 3.0ML/H, END 2.0ML, LAST ADMIN DATE- 2024
     Route: 050
     Dates: end: 2024
  4. CARBIDOPA\LEVODOPA [Suspect]
     Active Substance: CARBIDOPA\LEVODOPA
     Indication: Parkinson^s disease
     Dosage: LD: 1.20ML, BIR: 0.47ML/H, HIR: 0.47ML/H, LIR: 0.47ML/H, ED: 0.10ML, REMAINS AT 16 HOURS
     Route: 058
     Dates: start: 20241101
  5. CARBIDOPA\LEVODOPA [Suspect]
     Active Substance: CARBIDOPA\LEVODOPA
     Dosage: LD: 1.20ML, BIR: 0.27ML/H, HIR: 0.27ML/H, LIR: 0.27ML/H, ED: 0.10ML
     Route: 058
     Dates: start: 20240919, end: 20241004
  6. CARBIDOPA\LEVODOPA [Suspect]
     Active Substance: CARBIDOPA\LEVODOPA
     Dosage: LD: 0.00ML, BIR: 0.47ML/H, HIR: 0.47ML/H, LIR: 0.47ML/H, ED: 0.10ML, REMAINS AT 16 HOURS
     Route: 058
     Dates: start: 20241004, end: 20241101
  7. CARBIDOPA\LEVODOPA [Suspect]
     Active Substance: CARBIDOPA\LEVODOPA
     Dosage: GOES TO 16 HOURS?LAST ADMIN DATE- 2024
     Route: 058
     Dates: start: 20240902
  8. POLYETHYLENE GLYCOLS [Concomitant]
     Active Substance: POLYETHYLENE GLYCOLS
     Indication: Product used for unknown indication

REACTIONS (18)
  - Stoma site inflammation [Not Recovered/Not Resolved]
  - Dyskinesia [Recovering/Resolving]
  - Cognitive disorder [Not Recovered/Not Resolved]
  - Hallucination [Not Recovered/Not Resolved]
  - Drug ineffective [Not Recovered/Not Resolved]
  - On and off phenomenon [Not Recovered/Not Resolved]
  - Surgical failure [Not Recovered/Not Resolved]
  - Muscle rigidity [Not Recovered/Not Resolved]
  - Anxiety [Not Recovered/Not Resolved]
  - Gait disturbance [Not Recovered/Not Resolved]
  - Abnormal behaviour [Not Recovered/Not Resolved]
  - Feeling abnormal [Not Recovered/Not Resolved]
  - Anger [Not Recovered/Not Resolved]
  - Hyperhidrosis [Not Recovered/Not Resolved]
  - Asthenia [Not Recovered/Not Resolved]
  - Cognitive disorder [Not Recovered/Not Resolved]
  - Depressed mood [Not Recovered/Not Resolved]
  - Memory impairment [Not Recovered/Not Resolved]

NARRATIVE: CASE EVENT DATE: 20240101
